FAERS Safety Report 8445016-3 (Version None)
Quarter: 2012Q2

REPORT INFORMATION
  Report Type: 
  Country: None (occurrence: None)
  Receive Date: 20120618
  Receipt Date: 20120608
  Transmission Date: 20120825
  Serious: Yes (Other)
  Sender: FDA-Public Use
  Company Number: US-ROCHE-1077658

PATIENT
  Sex: Female

DRUGS (6)
  1. XELODA [Suspect]
     Indication: COLORECTAL CANCER METASTATIC
     Route: 048
     Dates: start: 20120201
  2. AVASTIN [Suspect]
     Indication: COLORECTAL CANCER METASTATIC
     Route: 042
     Dates: start: 20120201
  3. AVASTIN [Suspect]
     Route: 042
  4. IRINOTECAN HYDROCHLORIDE [Suspect]
     Indication: COLORECTAL CANCER METASTATIC
     Route: 042
     Dates: start: 20120201
  5. XELODA [Suspect]
     Route: 048
  6. IRINOTECAN HYDROCHLORIDE [Suspect]
     Route: 042

REACTIONS (6)
  - DEAFNESS UNILATERAL [None]
  - ALOPECIA [None]
  - STOMATITIS [None]
  - CONSTIPATION [None]
  - ABDOMINAL DISCOMFORT [None]
  - FATIGUE [None]
